FAERS Safety Report 18774377 (Version 6)
Quarter: 2021Q2

REPORT INFORMATION
  Report Type: Report from Study
  Country: US (occurrence: US)
  Receive Date: 20210122
  Receipt Date: 20210628
  Transmission Date: 20210717
  Serious: Yes (Other)
  Sender: FDA-Public Use
  Company Number: US-OTSUKA-2020_029712AA

PATIENT
  Sex: Male
  Weight: 106 kg

DRUGS (2)
  1. CEDAZURIDINE AND DECITABINE [Suspect]
     Active Substance: CEDAZURIDINE\DECITABINE
     Indication: MYELODYSPLASTIC SYNDROME
     Dosage: (35 MG DECITABINE AND 100 MG CEDAZURIDINE) DAILY ON DAYS 1?5 EVERY 28 DAYS, QD
     Route: 048
     Dates: start: 20201109
  2. CEDAZURIDINE AND DECITABINE [Suspect]
     Active Substance: CEDAZURIDINE\DECITABINE
     Dosage: (35 MG DECITABINE AND 100 MG CEDAZURIDINE) DAILY ON DAYS 1?5 EVERY 28 DAYS, QD
     Route: 048
     Dates: end: 20201109

REACTIONS (6)
  - Nonspecific reaction [Unknown]
  - Blood count abnormal [Unknown]
  - Faeces discoloured [Unknown]
  - Platelet count decreased [Unknown]
  - Asthenia [Unknown]
  - Haemoglobin decreased [Unknown]
